FAERS Safety Report 20740547 (Version 1)
Quarter: 2022Q2

REPORT INFORMATION
  Report Type: Spontaneous
  Country: US (occurrence: US)
  Receive Date: 20220422
  Receipt Date: 20220422
  Transmission Date: 20220721
  Serious: Yes (Hospitalization)
  Sender: FDA-Public Use
  Company Number: US-CELGENE-USA-20220207291

PATIENT
  Age: 82 Year
  Sex: Female

DRUGS (1)
  1. POMALYST [Suspect]
     Active Substance: POMALIDOMIDE
     Indication: Plasma cell myeloma
     Dosage: 4 MILLIGRAM
     Route: 048
     Dates: start: 20220121

REACTIONS (6)
  - Dyspnoea [Unknown]
  - Hypertension [Unknown]
  - Back pain [Unknown]
  - Somnolence [Unknown]
  - Anxiety [Unknown]
  - Increased appetite [Unknown]

NARRATIVE: CASE EVENT DATE: 20220216
